FAERS Safety Report 7027759-1 (Version None)
Quarter: 2010Q4

REPORT INFORMATION
  Report Type: 
  Country: None (occurrence: None)
  Receive Date: 20101005
  Receipt Date: 20100928
  Transmission Date: 20110411
  Serious: Yes (Other)
  Sender: FDA-Public Use
  Company Number: US-SHIRE-ALL1-2010-05109

PATIENT
  Sex: Female
  Weight: 38.549 kg

DRUGS (2)
  1. DAYTRANA [Suspect]
     Indication: ATTENTION DEFICIT/HYPERACTIVITY DISORDER
     Dosage: 30 MG, 1X/DAY:QD
     Route: 062
     Dates: start: 20070101, end: 20100901
  2. DAYTRANA [Suspect]
     Dosage: UNK MG, (APPLIED TWO 30 MG PATCHES CUT IN 1/2 1X/DAY:QD
     Route: 062
     Dates: start: 20100901

REACTIONS (5)
  - EPIPHYSEAL INJURY [None]
  - PRODUCT ADHESION ISSUE [None]
  - PRODUCT QUALITY ISSUE [None]
  - UPPER LIMB FRACTURE [None]
  - WRONG TECHNIQUE IN DRUG USAGE PROCESS [None]
